FAERS Safety Report 15313110 (Version 2)
Quarter: 2018Q4

REPORT INFORMATION
  Report Type: Spontaneous
  Country: BR (occurrence: BR)
  Receive Date: 20180823
  Receipt Date: 20181009
  Transmission Date: 20190204
  Serious: Yes (Disabling)
  Sender: FDA-Public Use
  Company Number: BR-BAUSCH-BL-2018-023351

PATIENT
  Age: 26 Year
  Sex: Male

DRUGS (3)
  1. ALREX [Suspect]
     Active Substance: LOTEPREDNOL ETABONATE
     Indication: POSTOPERATIVE CARE
     Dosage: THE TRANSPLANTED EYE
     Route: 047
     Dates: start: 201708, end: 201804
  2. PRED MILD [Suspect]
     Active Substance: PREDNISOLONE ACETATE
     Indication: PRODUCT USED FOR UNKNOWN INDICATION
     Dosage: PRODUCT USED FOR 2 MONTHS
     Route: 065
     Dates: start: 201804
  3. ALREX [Suspect]
     Active Substance: LOTEPREDNOL ETABONATE
     Indication: OFF LABEL USE

REACTIONS (4)
  - Blindness [Not Recovered/Not Resolved]
  - Intraocular pressure increased [Not Recovered/Not Resolved]
  - Product supply issue [Not Recovered/Not Resolved]
  - Off label use [Recovered/Resolved]

NARRATIVE: CASE EVENT DATE: 201708
